FAERS Safety Report 6287849-8 (Version None)
Quarter: 2009Q3

REPORT INFORMATION
  Report Type: 
  Country: None (occurrence: None)
  Receive Date: 20090729
  Receipt Date: 20070629
  Transmission Date: 20100115
  Serious: Yes (Hospitalization)
  Sender: FDA-Public Use
  Company Number: US-ASTRAZENECA-2006UW25059

PATIENT
  Age: 18193 Day
  Sex: Male
  Weight: 156.5 kg

DRUGS (67)
  1. SEROQUEL [Suspect]
     Indication: SCHIZOPHRENIA
     Dosage: 25 TO 200 MG
     Route: 048
     Dates: start: 20010824
  2. SEROQUEL [Suspect]
     Indication: BIPOLAR DISORDER
     Dosage: 25 TO 200 MG
     Route: 048
     Dates: start: 20010824
  3. SEROQUEL [Suspect]
     Indication: DEPRESSION
     Dosage: 25 TO 200 MG
     Route: 048
     Dates: start: 20010824
  4. ABILIFY [Concomitant]
  5. HALDOL [Concomitant]
  6. NAVANE [Concomitant]
  7. RISPERDAL [Concomitant]
  8. THORAZINE [Concomitant]
  9. ZYPREXA [Concomitant]
  10. NABUMETONE [Concomitant]
     Indication: OSTEOARTHRITIS
     Route: 048
  11. AMITRIPTYLINE HCL [Concomitant]
     Indication: SLEEP DISORDER
  12. ASPIRIN [Concomitant]
     Indication: CORONARY ARTERY DISEASE
     Route: 048
  13. ATIVAN [Concomitant]
  14. CARISOPRODOL [Concomitant]
  15. CLARITIN-D [Concomitant]
  16. CYMBALTA [Concomitant]
     Dosage: 60 MG TO 90 MG EVERY MORNING
     Route: 048
  17. DESYREL [Concomitant]
  18. DEXAMETHASONE [Concomitant]
  19. DILAUDID [Concomitant]
  20. DOXAZOSIN MESYLATE [Concomitant]
     Indication: HYPERTENSION
  21. ENDOCET [Concomitant]
  22. FISH OIL [Concomitant]
  23. FAMOTIDINE [Concomitant]
  24. FLEXERIL [Concomitant]
     Indication: NEUROPATHY PERIPHERAL
  25. FUROSEMIDE [Concomitant]
  26. GEODON [Concomitant]
     Dosage: 20 TO 120 MG DAILY
  27. HYDROCHLOROTHIAZIDE [Concomitant]
  28. KETOROLAC TROMETHAMINE [Concomitant]
  29. LAMICTAL [Concomitant]
     Dosage: 25 MG DAILY FOR TWO WEEKS THEN 50 MG DAILY FOR TWO WEEKS AND THEN 100 MG DAILY TO 150 MG.
  30. LEVAQUIN [Concomitant]
     Indication: DIVERTICULITIS
     Route: 048
  31. LEXAPRO [Concomitant]
     Indication: DEPRESSIVE SYMPTOM
     Dosage: 10 TO 30 MG AT NIGHT
     Dates: start: 20041112
  32. LISINOPRIL [Concomitant]
  33. LODINE [Concomitant]
  34. LOSARTAN POTASSIUM [Concomitant]
     Indication: HYPERTENSION
  35. MECLIZINE [Concomitant]
  36. MEDROL [Concomitant]
  37. METRONIDAZOLE [Concomitant]
     Indication: DIVERTICULITIS
     Dosage: 500 MG BID
  38. MICARDIS [Concomitant]
  39. MIRTAZAPINE [Concomitant]
  40. MS CONTIN [Concomitant]
     Indication: NEUROPATHY PERIPHERAL
     Dosage: 15 - 30 MG
  41. MOTRIN [Concomitant]
  42. NEURONTIN [Concomitant]
  43. PANLOR DC [Concomitant]
  44. PERCOCET [Concomitant]
  45. PREDNISONE [Concomitant]
  46. LYRICA [Concomitant]
     Indication: NEUROPATHY PERIPHERAL
     Dosage: 150 MG TO 300 MG TWICE DAILY
  47. PREVACID [Concomitant]
  48. PRILOSEC [Concomitant]
  49. PROTONIX [Concomitant]
  50. RANITIDINE [Concomitant]
     Indication: GASTROOESOPHAGEAL REFLUX DISEASE
     Dosage: 75 TO 150 MG DAILY
  51. SALSALATE [Concomitant]
  52. SKELAXIN [Concomitant]
  53. SULFASALAZINE [Concomitant]
  54. SULPHAMETHOXAZOLE [Concomitant]
  55. TARKA [Concomitant]
     Dosage: 4/240 MG DAILY
  56. TEMAZEPAM [Concomitant]
  57. TRIAMTERENE [Concomitant]
  58. TYLENOL [Concomitant]
     Indication: HEADACHE
  59. ULTRAM [Concomitant]
     Dosage: 50 MG PRN
     Route: 048
  60. VALIUM [Concomitant]
     Indication: ANXIETY
     Route: 048
  61. VICODINE ES [Concomitant]
     Indication: NEURALGIA
  62. VIAGRA [Concomitant]
     Indication: ERECTILE DYSFUNCTION
     Dosage: 100 MG AS NEEDED
  63. VARELAN [Concomitant]
     Indication: HYPERTENSION
  64. WELLBUTRIN SR [Concomitant]
     Indication: BIPOLAR DISORDER
     Route: 048
  65. ZOCOR [Concomitant]
     Indication: CORONARY ARTERY DISEASE
  66. INVEGA [Concomitant]
     Dates: start: 20070827
  67. AMBIEN [Concomitant]

REACTIONS (3)
  - DIABETES MELLITUS [None]
  - DIABETIC NEUROPATHY [None]
  - TYPE 2 DIABETES MELLITUS [None]
